FAERS Safety Report 10635698 (Version 4)
Quarter: 2016Q1

REPORT INFORMATION
  Report Type: Spontaneous
  Country: US (occurrence: US)
  Receive Date: 20141205
  Receipt Date: 20160209
  Transmission Date: 20160525
  Serious: Yes (Death)
  Sender: FDA-Public Use
  Company Number: US-009507513-1412USA001276

PATIENT
  Age: 46 Year
  Sex: Male

DRUGS (1)
  1. KEYTRUDA [Suspect]
     Active Substance: PEMBROLIZUMAB
     Indication: MALIGNANT MELANOMA
     Dosage: 130 MG, EVERY 3 WEEKS, FIRST AND ONLY DOSE RECEIVED
     Route: 042
     Dates: start: 20150211

REACTIONS (3)
  - Therapy cessation [Unknown]
  - Visual impairment [Unknown]
  - Death [Fatal]

NARRATIVE: CASE EVENT DATE: 201503
